FAERS Safety Report 9690495 (Version 1)
Quarter: 2013Q4

REPORT INFORMATION
  Report Type: Spontaneous
  Country: US (occurrence: None)
  Receive Date: 20131114
  Receipt Date: 20131114
  Transmission Date: 20140711
  Serious: Yes (Hospitalization)
  Sender: FDA-Public Use
  Company Number: None

PATIENT
  Age: 24 Year
  Sex: Female
  Weight: 63.5 kg

DRUGS (3)
  1. MEDROXYPROGESTERONE ACETATE [Suspect]
     Indication: CONTRACEPTION
     Dosage: 150 MG/ML?1 ML VIAL?1 SHOT/3 MONTHS?INJECTION IN UPPER ARM
     Dates: start: 20130719
  2. VITAMIN D [Concomitant]
  3. MULTI-VITAMINS [Concomitant]

REACTIONS (12)
  - Fatigue [None]
  - Anxiety [None]
  - Food craving [None]
  - Asthenia [None]
  - Dizziness [None]
  - Syncope [None]
  - Impaired work ability [None]
  - Menstrual disorder [None]
  - Economic problem [None]
  - Dyspnoea [None]
  - Weight increased [None]
  - Derealisation [None]
